FAERS Safety Report 19412699 (Version 3)
Quarter: 2022Q3

REPORT INFORMATION
  Report Type: Spontaneous
  Country: US (occurrence: US)
  Receive Date: 20210614
  Receipt Date: 20220711
  Transmission Date: 20221027
  Serious: Yes (Other)
  Sender: FDA-Public Use
  Company Number: US-JNJFOC-20210623632

PATIENT

DRUGS (1)
  1. XARELTO [Suspect]
     Active Substance: RIVAROXABAN
     Indication: Product used for unknown indication
     Route: 048
     Dates: start: 19981212

REACTIONS (5)
  - Vascular graft [Unknown]
  - Product packaging issue [Unknown]
  - Arthritis [Unknown]
  - Stent placement [Unknown]
  - Cardiac assistance device user [Unknown]

NARRATIVE: CASE EVENT DATE: 20000101
